FAERS Safety Report 14115076 (Version 1)
Quarter: 2017Q4

REPORT INFORMATION
  Report Type: Spontaneous
  Country: US (occurrence: US)
  Receive Date: 20171023
  Receipt Date: 20171023
  Transmission Date: 20180321
  Serious: No
  Sender: FDA-Public Use
  Company Number: US-ALLERGAN-1680534US

PATIENT
  Sex: Female

DRUGS (1)
  1. LINZESS [Suspect]
     Active Substance: LINACLOTIDE
     Indication: COLITIS ULCERATIVE
     Dosage: 290 ?G, QD
     Route: 048
     Dates: start: 2015

REACTIONS (2)
  - Constipation [Recovering/Resolving]
  - Off label use [Unknown]
